FAERS Safety Report 13859568 (Version 1)
Quarter: 2017Q3

REPORT INFORMATION
  Report Type: Spontaneous
  Country: US (occurrence: US)
  Receive Date: 20170811
  Receipt Date: 20170811
  Transmission Date: 20171127
  Serious: Yes (Hospitalization, Disabling, Other)
  Sender: FDA-Public Use
  Company Number: None

PATIENT
  Age: 65 Year
  Sex: Female
  Weight: 51.75 kg

DRUGS (3)
  1. MVI [Concomitant]
     Active Substance: VITAMINS
  2. FISH OIL [Concomitant]
     Active Substance: FISH OIL
  3. CIPROFLOXACIN. [Suspect]
     Active Substance: CIPROFLOXACIN
     Indication: URINARY TRACT INFECTION
     Dosage: ?          QUANTITY:1 TABLET(S);?
     Route: 048
     Dates: start: 20170708, end: 20170710

REACTIONS (6)
  - Gait disturbance [None]
  - Hypoaesthesia [None]
  - Sensory disturbance [None]
  - Musculoskeletal pain [None]
  - Asthenia [None]
  - Hypoaesthesia oral [None]

NARRATIVE: CASE EVENT DATE: 20170722
